FAERS Safety Report 5986615-8 (Version None)
Quarter: 2008Q4

REPORT INFORMATION
  Report Type: 
  Country: None (occurrence: None)
  Receive Date: 20081103
  Receipt Date: 20081126
  Transmission Date: 20090506
  Serious: Yes (Hospitalization)
  Sender: FDA-Public Use
  Company Number: 2008SP020500

PATIENT
  Age: 73 Year
  Sex: Male
  Weight: 70 kg

DRUGS (7)
  1. TEMODAL [Suspect]
     Indication: GLIOBLASTOMA
     Dosage: 120 MG;QD; PO
     Route: 048
     Dates: start: 20080805, end: 20080924
  2. CANDESARTAN CILEXETIL [Suspect]
     Indication: HYPERTENSION
     Dosage: 8 MG; QAM; PO
     Route: 048
     Dates: end: 20080917
  3. KEPPRA [Concomitant]
  4. DEROXAT [Concomitant]
  5. ATARAX [Concomitant]
  6. LEXOMIL [Concomitant]
  7. ALLOPURINOL [Concomitant]

REACTIONS (1)
  - NEPHROGENIC DIABETES INSIPIDUS [None]
